FAERS Safety Report 9538049 (Version 3)
Quarter: 2013Q4

REPORT INFORMATION
  Report Type: Spontaneous
  Country: US (occurrence: US)
  Receive Date: 20130920
  Receipt Date: 20131127
  Transmission Date: 20140711
  Serious: Yes (Death)
  Sender: FDA-Public Use
  Company Number: US-009507513-1309USA005459

PATIENT
  Sex: Male

DRUGS (3)
  1. PROVENTIL [Suspect]
     Indication: CHRONIC OBSTRUCTIVE PULMONARY DISEASE
     Dosage: 2 PUFFS 4 TIMES A DAY QID
     Route: 055
     Dates: start: 20120320
  2. SPIRIVA [Concomitant]
  3. ATROVENT [Concomitant]

REACTIONS (1)
  - Intracranial aneurysm [Fatal]
